FAERS Safety Report 6628686-1 (Version None)
Quarter: 2010Q1

REPORT INFORMATION
  Report Type: 
  Country: None (occurrence: None)
  Receive Date: 20100311
  Receipt Date: 20100304
  Transmission Date: 20100710
  Serious: Yes (Hospitalization)
  Sender: FDA-Public Use
  Company Number: US-BRISTOL-MYERS SQUIBB COMPANY-15006182

PATIENT
  Age: 12 Year
  Sex: Male

DRUGS (4)
  1. ABILIFY [Suspect]
     Indication: BIPOLAR DISORDER
     Dosage: 1DF- 2MG FOR 2D,5MG FOR 2D,TITRATED 10MG FOR 2D
  2. ABILIFY [Suspect]
     Indication: ATTENTION DEFICIT/HYPERACTIVITY DISORDER
     Dosage: 1DF- 2MG FOR 2D,5MG FOR 2D,TITRATED 10MG FOR 2D
  3. COGENTIN [Suspect]
     Indication: BIPOLAR DISORDER
  4. COGENTIN [Suspect]
     Indication: ATTENTION DEFICIT/HYPERACTIVITY DISORDER

REACTIONS (2)
  - DELUSION [None]
  - PARKINSONISM [None]
